FAERS Safety Report 18856125 (Version 1)
Quarter: 2021Q1

REPORT INFORMATION
  Report Type: Other
  Country: US (occurrence: US)
  Receive Date: 20210206
  Receipt Date: 20210206
  Transmission Date: 20210420
  Serious: Yes (Other)
  Sender: FDA-Public Use
  Company Number: US-ROCHE-2763772

PATIENT
  Sex: Male

DRUGS (4)
  1. COMPAZINE [Concomitant]
     Active Substance: PROCHLORPERAZINE MALEATE
  2. XELODA [Suspect]
     Active Substance: CAPECITABINE
     Indication: COLON CANCER
     Dosage: TAKE TWO 150MG TABLETS AND THREE 500MG TABLETS BY MOUTH TWICE A DAY WITH FOOD 2 WEEK(S) ON, 1 WEEK(S
     Route: 048
  3. ZOFRAN [Concomitant]
     Active Substance: ONDANSETRON HYDROCHLORIDE
  4. XELODA [Suspect]
     Active Substance: CAPECITABINE
     Dosage: TAKE TWO 150MG TABLETS AND THREE 500MG TABLETS BY MOUTH TWICE A DAY WITH FOOD 2 WEEK(S) ON, 1 WEEK(S
     Route: 048

REACTIONS (2)
  - Speech disorder [Unknown]
  - Cerebrovascular accident [Unknown]
